FAERS Safety Report 25422538 (Version 1)
Quarter: 2025Q2

REPORT INFORMATION
  Report Type: Spontaneous
  Country: BE (occurrence: BE)
  Receive Date: 20250611
  Receipt Date: 20250611
  Transmission Date: 20250716
  Serious: Yes (Death, Other)
  Sender: Steriscience PTE
  Company Number: BE-STERISCIENCE B.V.-2025-ST-001129

PATIENT
  Age: 7 Decade
  Sex: Male

DRUGS (2)
  1. MYCOPHENOLATE MOFETIL [Suspect]
     Active Substance: MYCOPHENOLATE MOFETIL
     Indication: Immunosuppressant drug therapy
     Route: 065
  2. TACROLIMUS [Suspect]
     Active Substance: TACROLIMUS
     Indication: Immunosuppressant drug therapy
     Route: 065

REACTIONS (5)
  - Pneumocephalus [Unknown]
  - Sinusitis fungal [Fatal]
  - Sinusitis [Fatal]
  - Aspergillus infection [Fatal]
  - Off label use [Unknown]
